FAERS Safety Report 9438030 (Version 1)
Quarter: 2013Q3

REPORT INFORMATION
  Report Type: Spontaneous
  Country: US (occurrence: US)
  Receive Date: 20130802
  Receipt Date: 20130802
  Transmission Date: 20140515
  Serious: No
  Sender: FDA-Public Use
  Company Number: US-BRISTOL-MYERS SQUIBB COMPANY-16719882

PATIENT
  Age: 58 Year
  Sex: Male

DRUGS (3)
  1. WARFARIN SODIUM [Suspect]
  2. CARVEDILOL [Concomitant]
  3. ASPIRIN [Concomitant]

REACTIONS (1)
  - International normalised ratio fluctuation [Unknown]
